FAERS Safety Report 12368367 (Version 5)
Quarter: 2018Q2

REPORT INFORMATION
  Report Type: Spontaneous
  Country: US (occurrence: US)
  Receive Date: 20160513
  Receipt Date: 20180604
  Transmission Date: 20180711
  Serious: No
  Sender: FDA-Public Use
  Company Number: US-PFIZER INC-2016247182

PATIENT
  Age: 42 Year
  Sex: Female

DRUGS (4)
  1. IBRANCE [Suspect]
     Active Substance: PALBOCICLIB
     Indication: BREAST CANCER METASTATIC
     Dosage: 75 MG, UNK
     Dates: start: 201505
  2. IBRANCE [Suspect]
     Active Substance: PALBOCICLIB
     Dosage: 75 MG, UNK
  3. IBRANCE [Suspect]
     Active Substance: PALBOCICLIB
     Dosage: 100 MG, UNK
  4. LETROZOLE. [Suspect]
     Active Substance: LETROZOLE
     Indication: BREAST CANCER METASTATIC
     Dosage: UNK
     Dates: start: 201505

REACTIONS (10)
  - Dental caries [Unknown]
  - Dry mouth [Unknown]
  - White blood cell count decreased [Unknown]
  - Hypoaesthesia [Unknown]
  - Disturbance in sexual arousal [Unknown]
  - Arthralgia [Unknown]
  - Back pain [Unknown]
  - Alopecia [Unknown]
  - Vulvovaginal dryness [Unknown]
  - Hormone level abnormal [Unknown]
